FAERS Safety Report 17650364 (Version 1)
Quarter: 2020Q2

REPORT INFORMATION
  Report Type: Spontaneous
  Country: JP (occurrence: JP)
  Receive Date: 20200409
  Receipt Date: 20200409
  Transmission Date: 20200713
  Serious: Yes (Other)
  Sender: FDA-Public Use
  Company Number: JP-PFIZER INC-2020144372

PATIENT
  Age: 77 Year
  Sex: Female

DRUGS (4)
  1. LEVOFLOXACIN. [Suspect]
     Active Substance: LEVOFLOXACIN
     Indication: STAPHYLOCOCCAL INFECTION
  2. CLINDAMYCIN. [Suspect]
     Active Substance: CLINDAMYCIN
     Indication: STAPHYLOCOCCAL INFECTION
  3. CLINDAMYCIN. [Suspect]
     Active Substance: CLINDAMYCIN
     Indication: POSTOPERATIVE WOUND INFECTION
     Dosage: UNK
  4. LEVOFLOXACIN. [Suspect]
     Active Substance: LEVOFLOXACIN
     Indication: POSTOPERATIVE WOUND INFECTION
     Dosage: UNK

REACTIONS (4)
  - Tubulointerstitial nephritis [Unknown]
  - Pyrexia [Recovered/Resolved]
  - Product use in unapproved indication [Unknown]
  - Off label use [Unknown]
